FAERS Safety Report 10510855 (Version 1)
Quarter: 2014Q4

REPORT INFORMATION
  Report Type: Spontaneous
  Country: NO (occurrence: None)
  Receive Date: 20141008
  Receipt Date: 20141008
  Transmission Date: 20150528
  Serious: Yes (Hospitalization, Disabling, Other)
  Sender: FDA-Public Use
  Company Number: 2014COV00131

PATIENT
  Age: 37 Year
  Sex: Female

DRUGS (6)
  1. IMUREL (AZATHIOPRINHE) [Concomitant]
  2. ADALAT (NIFEDIPINE) [Concomitant]
  3. TRIOBE (CYANOCOBALAMIN /FOLIC ACID /PYRIDOXINE) [Concomitant]
  4. PLAQUENIL [Suspect]
     Active Substance: HYDROXYCHLOROQUINE SULFATE
     Indication: CHRONIC CUTANEOUS LUPUS ERYTHEMATOSUS
     Dosage: 2X/DAY
     Dates: start: 199705
  5. ERCOQUIN (HYDROXYCHLOROQUINE SULFATE) [Concomitant]
  6. ALBYL-E (ACETYLSALIYLIC ACID/MAGNESIUM OXIDE) [Concomitant]

REACTIONS (8)
  - Dizziness [None]
  - Acute myocardial infarction [None]
  - Cardiac failure [None]
  - Cardiomyopathy [None]
  - Ejection fraction decreased [None]
  - Balance disorder [None]
  - Dilatation ventricular [None]
  - Renal cancer [None]

NARRATIVE: CASE EVENT DATE: 201306
